FAERS Safety Report 6527448-3 (Version None)
Quarter: 2010Q1

REPORT INFORMATION
  Report Type: 
  Country: None (occurrence: None)
  Receive Date: 20100105
  Receipt Date: 20091221
  Transmission Date: 20100710
  Serious: Yes (Other)
  Sender: FDA-Public Use
  Company Number: US-PERRIGO-09US006027

PATIENT
  Sex: Male

DRUGS (3)
  1. NAPROXEN SODIUM-PSEUDOEPHEDRINE HYDROCHLORIDE ER 253 [Suspect]
     Indication: DRUG EXPOSURE DURING PREGNANCY
     Dosage: 1 DOSE DAILY
     Route: 064
     Dates: start: 20090910
  2. ALEVE (CAPLET) [Suspect]
     Indication: DRUG EXPOSURE DURING PREGNANCY
     Dosage: 1320 MG, QD
     Route: 064
     Dates: start: 20090101, end: 20090401
  3. VITAMIN TAB [Concomitant]
     Indication: DRUG EXPOSURE DURING PREGNANCY
     Route: 064

REACTIONS (3)
  - DRUG EXPOSURE DURING PREGNANCY [None]
  - DRUG SCREEN FALSE POSITIVE [None]
  - PREMATURE BABY [None]
